FAERS Safety Report 10974801 (Version 1)
Quarter: 2015Q2

REPORT INFORMATION
  Report Type: Spontaneous
  Country: FR (occurrence: FR)
  Receive Date: 20150401
  Receipt Date: 20150401
  Transmission Date: 20150821
  Serious: Yes (Hospitalization, Other)
  Sender: FDA-Public Use
  Company Number: FR-ASTRAZENECA-2015SE14848

PATIENT
  Age: 780 Month
  Sex: Male

DRUGS (9)
  1. NAROPEINE [Interacting]
     Active Substance: ROPIVACAINE HYDROCHLORIDE
     Indication: METASTATIC PAIN
     Route: 037
     Dates: start: 201408
  2. MORPHINE [Interacting]
     Active Substance: MORPHINE
     Indication: METASTATIC PAIN
     Route: 037
     Dates: start: 201408
  3. RADIOTHERAPY [Concomitant]
     Active Substance: RADIATION THERAPY
  4. NAROPEINE [Suspect]
     Active Substance: ROPIVACAINE HYDROCHLORIDE
     Indication: METASTATIC PAIN
     Route: 037
     Dates: start: 201408
  5. MORPHINE [Interacting]
     Active Substance: MORPHINE
     Indication: METASTATIC PAIN
     Route: 037
     Dates: start: 201408
  6. TRUVADA [Concomitant]
     Active Substance: EMTRICITABINE\TENOFOVIR DISOPROXIL FUMARATE
     Dosage: 200MG/245 MG ONE DF AT MIDDAY
  7. PRIALT [Interacting]
     Active Substance: ZICONOTIDE ACETATE
     Indication: METASTATIC PAIN
     Route: 037
     Dates: start: 201408
  8. EDURANT [Concomitant]
     Active Substance: RILPIVIRINE HYDROCHLORIDE
  9. LOPERAMIDE [Concomitant]
     Active Substance: LOPERAMIDE

REACTIONS (6)
  - Drug interaction [Unknown]
  - Confusional state [Recovered/Resolved]
  - Hallucination, visual [Recovered/Resolved]
  - Cognitive disorder [Unknown]
  - C-reactive protein increased [Unknown]
  - Inflammation [Unknown]

NARRATIVE: CASE EVENT DATE: 201410
